FAERS Safety Report 8561471 (Version 5)
Quarter: 2013Q2

REPORT INFORMATION
  Report Type: Report from Study
  Country: DE (occurrence: DE)
  Receive Date: 20120515
  Receipt Date: 20130508
  Transmission Date: 20140414
  Serious: Yes (Hospitalization, Other)
  Sender: FDA-Public Use
  Company Number: DE-BIOGENIDEC-2012BI013561

PATIENT
  Age: 40 Year
  Sex: Male

DRUGS (4)
  1. TYSABRI [Suspect]
     Indication: MULTIPLE SCLEROSIS
     Route: 042
     Dates: start: 20071212, end: 20120308
  2. ANTIDEPRESSANTS [Concomitant]
  3. ANTI-INFECTIVE [Concomitant]
  4. ANTI-EPILEPTIC [Concomitant]

REACTIONS (3)
  - Progressive multifocal leukoencephalopathy [Not Recovered/Not Resolved]
  - Convulsion [Unknown]
  - Immune reconstitution inflammatory syndrome [Recovered/Resolved]
